FAERS Safety Report 5367465-2 (Version None)
Quarter: 2007Q2

REPORT INFORMATION
  Report Type: 
  Country: None (occurrence: None)
  Receive Date: 20070622
  Receipt Date: 20060630
  Transmission Date: 20071010
  Serious: No
  Sender: FDA-Public Use
  Company Number: US-ASTRAZENECA-2006UW13818

PATIENT
  Sex: Female

DRUGS (4)
  1. PULMICORT [Suspect]
     Indication: HYPERSENSITIVITY
     Route: 055
     Dates: start: 20060101
  2. ALLEGRA [Concomitant]
  3. PRAVACHOL [Concomitant]
  4. NEXIUM [Concomitant]
     Route: 048

REACTIONS (2)
  - GLOSSODYNIA [None]
  - TONGUE DISCOLOURATION [None]
